FAERS Safety Report 18112692 (Version 14)
Quarter: 2022Q4

REPORT INFORMATION
  Report Type: Report from Study
  Country: CN (occurrence: None)
  Receive Date: 20200805
  Receipt Date: 20221013
  Transmission Date: 20230112
  Serious: Yes (Hospitalization)
  Sender: FDA-Public Use
  Company Number: CN-ROCHE-2651162

PATIENT
  Age: 34 Year
  Sex: Male
  Weight: 85 kg

DRUGS (19)
  1. PLACEBO [Suspect]
     Active Substance: UNSPECIFIED INGREDIENT
     Indication: Lung adenocarcinoma
     Dosage: DATE OF MOST RECENT PLACEBO PRIOR TO ADVERSE EVENT ONSET: 07/JUL/2020
     Route: 042
     Dates: start: 20200707
  2. PEMETREXED [Suspect]
     Active Substance: PEMETREXED
     Indication: Lung adenocarcinoma
     Dosage: DATE OF MOST RECENT DOSE OF PEMETREXED PRIOR TO ADVERSE EVENT ONSET: 08/JUL/2020 (DOSE: 975 MG)
     Route: 042
     Dates: start: 20200708
  3. CARBOPLATIN [Suspect]
     Active Substance: CARBOPLATIN
     Indication: Lung adenocarcinoma
     Dosage: DOSE OF MOST RECENT DOSE OF CARBOPLATIN ADMINISTERED PRIOR TO ADVERSE EVENT ONSET: 08/JUL/2020 (DOSE
     Route: 042
     Dates: start: 20200708
  4. BEVACIZUMAB [Suspect]
     Active Substance: BEVACIZUMAB
     Indication: Lung adenocarcinoma
     Dosage: DATE OF MOST RECENT DOSE OF BEVACIZUMAB PRIOR TO ADVERSE EVENTONSET 07/JUL/2020 (DOSE 1275 MG).
     Route: 042
     Dates: start: 20200707
  5. OMEPRAZOLE SODIUM [Concomitant]
     Active Substance: OMEPRAZOLE SODIUM
     Dates: start: 20200708, end: 20200709
  6. OMEPRAZOLE SODIUM [Concomitant]
     Active Substance: OMEPRAZOLE SODIUM
     Dates: start: 20200818, end: 20200821
  7. TIOPRONIN [Concomitant]
     Active Substance: TIOPRONIN
     Dates: start: 20200708, end: 20200709
  8. TIOPRONIN [Concomitant]
     Active Substance: TIOPRONIN
     Dates: start: 20200730, end: 20200804
  9. TIOPRONIN [Concomitant]
     Active Substance: TIOPRONIN
     Dates: start: 20200819, end: 20200819
  10. PALONOSETRON HYDROCHLORIDE [Concomitant]
     Active Substance: PALONOSETRON HYDROCHLORIDE
     Dates: start: 20200708, end: 20200708
  11. PALONOSETRON HYDROCHLORIDE [Concomitant]
     Active Substance: PALONOSETRON HYDROCHLORIDE
     Dates: start: 20200819, end: 20200819
  12. DEXAMETHASONE ACETATE [Concomitant]
     Active Substance: DEXAMETHASONE ACETATE
     Route: 048
     Dates: start: 20200818, end: 20200820
  13. DEXAMETHASONE ACETATE [Concomitant]
     Active Substance: DEXAMETHASONE ACETATE
     Route: 048
     Dates: start: 20200707, end: 20200709
  14. APREPITANT [Concomitant]
     Active Substance: APREPITANT
     Dosage: 1 CAPSULE
     Route: 048
     Dates: start: 20200819, end: 20200820
  15. APREPITANT [Concomitant]
     Active Substance: APREPITANT
     Route: 048
     Dates: start: 20200709, end: 20200709
  16. INOSINE [Concomitant]
     Active Substance: INOSINE
     Dates: start: 20200819, end: 20200820
  17. GLUTATHIONE [Concomitant]
     Active Substance: GLUTATHIONE
     Dates: start: 20200907, end: 20200910
  18. TIOPRONIN [Concomitant]
     Active Substance: TIOPRONIN
     Dates: start: 20200907, end: 20200916
  19. BICYCLOL [Concomitant]
     Active Substance: BICYCLOL
     Dates: start: 20200907, end: 20200916

REACTIONS (1)
  - Abscess [Recovered/Resolved with Sequelae]

NARRATIVE: CASE EVENT DATE: 20200723
